FAERS Safety Report 5570044-5 (Version None)
Quarter: 2007Q4

REPORT INFORMATION
  Report Type: 
  Country: None (occurrence: None)
  Receive Date: 20071217
  Receipt Date: 20071130
  Transmission Date: 20080405
  Serious: Yes (Hospitalization)
  Sender: FDA-Public Use
  Company Number: 021345

PATIENT
  Age: 40 Year
  Sex: Male

DRUGS (4)
  1. ANTABUSE [Suspect]
     Indication: ALCOHOLISM
     Dosage: 250 MG, QD, ORAL
     Route: 048
  2. FOSAMPRENAVIR [Concomitant]
  3. TENOFOVIR (TENOFOVIR) [Concomitant]
  4. EMTRICITABINE (EMTRICITABINE) [Concomitant]

REACTIONS (10)
  - BRADYPHRENIA [None]
  - CEREBRAL ATROPHY [None]
  - COMA [None]
  - DELIRIUM [None]
  - DISORIENTATION [None]
  - ENCEPHALOPATHY [None]
  - GRAND MAL CONVULSION [None]
  - OXYGEN SATURATION DECREASED [None]
  - PNEUMONIA ASPIRATION [None]
  - PSYCHOTIC DISORDER [None]
